FAERS Safety Report 4968047-4 (Version None)
Quarter: 2006Q2

REPORT INFORMATION
  Report Type: 
  Country: None (occurrence: None)
  Receive Date: 20060410
  Receipt Date: 20060328
  Transmission Date: 20061013
  Serious: Yes (Hospitalization)
  Sender: FDA-Public Use
  Company Number: FR-ROCHE-442315

PATIENT
  Age: 80 Year
  Sex: Female
  Weight: 68 kg

DRUGS (3)
  1. LOXEN LP [Suspect]
     Indication: HYPERTENSION
     Route: 048
     Dates: start: 20051220, end: 20060102
  2. BECOTIDE [Concomitant]
  3. VENTOLIN [Concomitant]

REACTIONS (5)
  - ACUTE FEBRILE NEUTROPHILIC DERMATOSIS [None]
  - DIVERTICULUM INTESTINAL [None]
  - PLATELET COUNT DECREASED [None]
  - POLYP [None]
  - RASH MACULO-PAPULAR [None]
